FAERS Safety Report 6084090-9 (Version None)
Quarter: 2009Q1

REPORT INFORMATION
  Report Type: 
  Country: None (occurrence: None)
  Receive Date: 20090217
  Receipt Date: 20090217
  Transmission Date: 20090719
  Serious: Yes (Other)
  Sender: FDA-Public Use
  Company Number: None

PATIENT
  Age: 27 Year
  Sex: Female
  Weight: 69.4003 kg

DRUGS (1)
  1. REGLAN [Suspect]
     Indication: SUPPRESSED LACTATION
     Dosage: 3 TIMES DAILY PO
     Route: 048
     Dates: start: 20090107, end: 20090118

REACTIONS (2)
  - ANXIETY [None]
  - DEPRESSION [None]
